FAERS Safety Report 23836666 (Version 9)
Quarter: 2024Q4

REPORT INFORMATION
  Report Type: Spontaneous
  Country: IN (occurrence: IN)
  Receive Date: 20240509
  Receipt Date: 20241223
  Transmission Date: 20250114
  Serious: Yes (Other)
  Sender: PFIZER
  Company Number: IN-PFIZER INC-PV202400059912

PATIENT
  Age: 78 Year
  Sex: Female
  Weight: 48.6 kg

DRUGS (30)
  1. PALBOCICLIB [Suspect]
     Active Substance: PALBOCICLIB
     Indication: Breast cancer female
     Dosage: 100 MG, ONCE A DAY
     Route: 048
  2. PALBOCICLIB [Suspect]
     Active Substance: PALBOCICLIB
     Dosage: 125 MG, ONCE A DAY
     Route: 048
     Dates: start: 20220131
  3. PALBOCICLIB [Suspect]
     Active Substance: PALBOCICLIB
     Dosage: 100 MG, CYCLIC (1-0-0, 21 DAYS ON /7 DAYS OFF)
     Route: 048
  4. FULVESTRANT [Concomitant]
     Active Substance: FULVESTRANT
     Dosage: 500 MG, STAT GIVE 250 MG IN EACH BUTTOCK FOLLOW BY MONTHLY
     Route: 030
  5. ZOLED [Concomitant]
     Dosage: UNK
     Dates: start: 202201
  6. ZOLED [Concomitant]
     Dosage: 3.5 MG IN NS 100 CC IV OVER 30 MIN
     Route: 042
     Dates: start: 20240612
  7. ZOLED [Concomitant]
     Dosage: UNK, MONTHLY
     Dates: start: 20241008
  8. DOMPERIDONE\PANTOPRAZOLE SODIUM [Concomitant]
     Active Substance: DOMPERIDONE\PANTOPRAZOLE SODIUM
     Dosage: 1-0-0 30 DAYS
  9. DOMPERIDONE\PANTOPRAZOLE SODIUM [Concomitant]
     Active Substance: DOMPERIDONE\PANTOPRAZOLE SODIUM
     Dosage: 1-0-0 5 DAYS
  10. BENADRYL [Concomitant]
     Active Substance: DIPHENHYDRAMINE HYDROCHLORIDE
     Dosage: 2 TSF TDS 7 DAYS
  11. BENADRYL [Concomitant]
     Active Substance: DIPHENHYDRAMINE HYDROCHLORIDE
     Dosage: 2 TSF TDS 5 DAYS
  12. AUTRIN [ASCORBIC ACID;CYANOCOBALAMIN WITH INTRINSIC FACTOR CO;FERROUS [Concomitant]
     Dosage: 1 ALT DAY 30 DAYS
  13. AUTRIN [ASCORBIC ACID;CYANOCOBALAMIN WITH INTRINSIC FACTOR CO;FERROUS [Concomitant]
     Dosage: 1 ALT DAY 5 DAYS
  14. MBSON SL [Concomitant]
     Dosage: 1-0-0 30 DAYS
  15. MBSON SL [Concomitant]
     Dosage: 1-0-0 5 DAYS
  16. SHELCAL M [Concomitant]
     Dosage: 1-0-0 ALT DAY 4 WEEKS
  17. SHELCAL M [Concomitant]
     Dosage: 1-0-0 ALT DAY 5 DAYS
  18. ACETAMINOPHEN\TRAMADOL HYDROCHLORIDE [Concomitant]
     Active Substance: ACETAMINOPHEN\TRAMADOL HYDROCHLORIDE
     Dosage: 1-0-1 30 DAYS
  19. ACETAMINOPHEN\TRAMADOL HYDROCHLORIDE [Concomitant]
     Active Substance: ACETAMINOPHEN\TRAMADOL HYDROCHLORIDE
     Dosage: 1-0-1 5 DAYS
  20. FAMOTIDINE [Concomitant]
     Active Substance: FAMOTIDINE
     Dosage: 0-1 HS 10 DAYS
  21. FAMOTIDINE [Concomitant]
     Active Substance: FAMOTIDINE
     Dosage: 0-1 HS 5 DAYS
  22. DEXAMETHASONE [Concomitant]
     Active Substance: DEXAMETHASONE
     Dosage: 0.5MG 1-0-1 5 DAYS
  23. FLUCONAZOLE [Concomitant]
     Active Substance: FLUCONAZOLE
     Dosage: 150 MG ONCE A WEEK 4 WEEKS
  24. FLUCONAZOLE [Concomitant]
     Active Substance: FLUCONAZOLE
     Dosage: 150 MG ONCE A WEEK 5 DAYS
  25. ONDEM MD [Concomitant]
     Dosage: 4MG 1-0-0 SOS 10 TAB
  26. ONDEM MD [Concomitant]
     Dosage: 4MG 1-0-0 5 DAYS
  27. G CSF RECOMBINANTE HUMANO BIOETICOS [Concomitant]
     Dosage: UNK
     Dates: start: 20241014
  28. GARGLE [Concomitant]
     Dosage: DUAL FRESH GARGLE QID 30 DAYS
  29. GARGLE [Concomitant]
     Dosage: DUAL FRESH GARGLE QID 5 DAYS
  30. MUCAINE [ALUMINIUM HYDROXIDE;MAGNESIUM HYDROXIDE;OXETACAINE] [Concomitant]
     Dosage: SYRUP GEL

REACTIONS (19)
  - Hip arthroplasty [Unknown]
  - Neutrophil count decreased [Unknown]
  - Haemoglobin decreased [Unknown]
  - Neoplasm progression [Unknown]
  - Pain in extremity [Unknown]
  - Blood pressure systolic increased [Unknown]
  - C-reactive protein increased [Recovering/Resolving]
  - White blood cell count decreased [Unknown]
  - Blood glucose decreased [Unknown]
  - Full blood count decreased [Unknown]
  - Oropharyngeal pain [Unknown]
  - Dizziness [Unknown]
  - Nausea [Unknown]
  - Pyrexia [Unknown]
  - Hepatic steatosis [Unknown]
  - Thyroid mass [Unknown]
  - Platelet count increased [Unknown]
  - Headache [Unknown]
  - Blood pressure diastolic decreased [Unknown]

NARRATIVE: CASE EVENT DATE: 20240418
